FAERS Safety Report 13385054 (Version 1)
Quarter: 2017Q1

REPORT INFORMATION
  Report Type: Spontaneous
  Country: US (occurrence: US)
  Receive Date: 20170329
  Receipt Date: 20170329
  Transmission Date: 20170429
  Serious: No
  Sender: FDA-Public Use
  Company Number: US-TEVA-753835USA

PATIENT
  Age: 71 Year
  Sex: Male

DRUGS (11)
  1. COPAXONE [Suspect]
     Active Substance: GLATIRAMER ACETATE
     Indication: MULTIPLE SCLEROSIS
     Route: 058
     Dates: start: 20160227
  2. FIBER [Concomitant]
     Active Substance: PSYLLIUM HUSK
  3. TERAZOSIN [Concomitant]
     Active Substance: TERAZOSIN\TERAZOSIN HYDROCHLORIDE
  4. XARELTO [Concomitant]
     Active Substance: RIVAROXABAN
  5. METFORMIN [Concomitant]
     Active Substance: METFORMIN HYDROCHLORIDE
  6. PRAVASTATIN. [Concomitant]
     Active Substance: PRAVASTATIN
  7. SYNTHROID [Concomitant]
     Active Substance: LEVOTHYROXINE SODIUM
  8. TYSABRI [Concomitant]
     Active Substance: NATALIZUMAB
  9. VITAMIN B COMPLEX [Concomitant]
     Active Substance: CYANOCOBALAMIN\DEXPANTHENOL\NIACINAMIDE\PYRIDOXINE HYDROCHLORIDE\RIBOFLAVIN 5^-PHOSPHATE SODIUM\THIAMINE HYDROCHLORIDE\VITAMIN B COMPLEX
  10. MODAFINIL. [Concomitant]
     Active Substance: MODAFINIL
  11. D2 [Concomitant]

REACTIONS (4)
  - Constipation [Not Recovered/Not Resolved]
  - Diarrhoea [Not Recovered/Not Resolved]
  - Fatigue [Not Recovered/Not Resolved]
  - Gallbladder disorder [Not Recovered/Not Resolved]

NARRATIVE: CASE EVENT DATE: 20170301
